FAERS Safety Report 22115972 (Version 1)
Quarter: 2023Q1

REPORT INFORMATION
  Report Type: Spontaneous
  Country: US (occurrence: US)
  Receive Date: 20230320
  Receipt Date: 20230320
  Transmission Date: 20230417
  Serious: No
  Sender: FDA-Public Use
  Company Number: US-PFIZER INC-PV202300034595

PATIENT
  Age: 35 Year
  Sex: Male

DRUGS (9)
  1. CIBINQO [Suspect]
     Active Substance: ABROCITINIB
     Indication: Dermatitis atopic
     Dosage: 100 MG, 1X/DAY
     Route: 048
  2. CIBINQO [Suspect]
     Active Substance: ABROCITINIB
     Indication: Inflammation
     Dosage: 50 MG, 1X/DAY, INTERIM CARE
     Route: 048
  3. CIBINQO [Suspect]
     Active Substance: ABROCITINIB
     Indication: Pruritus
  4. CIBINQO [Suspect]
     Active Substance: ABROCITINIB
     Indication: Skin disorder
  5. CIBINQO [Suspect]
     Active Substance: ABROCITINIB
     Indication: Xerosis
  6. CIBINQO [Suspect]
     Active Substance: ABROCITINIB
     Indication: Post inflammatory pigmentation change
  7. CIBINQO [Suspect]
     Active Substance: ABROCITINIB
     Indication: Eczema
  8. CIBINQO [Suspect]
     Active Substance: ABROCITINIB
     Indication: Erythema
  9. CIBINQO [Suspect]
     Active Substance: ABROCITINIB
     Indication: Lichenification

REACTIONS (2)
  - Drug ineffective for unapproved indication [Unknown]
  - Off label use [Unknown]
